FAERS Safety Report 18321355 (Version 1)
Quarter: 2020Q3

REPORT INFORMATION
  Report Type: Other
  Country: FR (occurrence: FR)
  Receive Date: 20200929
  Receipt Date: 20200929
  Transmission Date: 20201103
  Serious: Yes (Hospitalization, Other)
  Sender: FDA-Public Use
  Company Number: FR-ROCHE-2683729

PATIENT

DRUGS (6)
  1. RITUXIMAB. [Suspect]
     Active Substance: RITUXIMAB
     Indication: EXTRANODAL MARGINAL ZONE B-CELL LYMPHOMA (MALT TYPE)
     Dosage: INDUCTION THERAPY FOLLOWED BY A MAINTENANCE PHASE OF 4 MONTHLY INFUSIONS OF RITUXIMAB AT THE SAME DO
     Route: 042
  2. RITUXIMAB. [Suspect]
     Active Substance: RITUXIMAB
     Indication: EXTRANODAL MARGINAL ZONE B-CELL LYMPHOMA (MALT TYPE)
     Route: 058
  3. CHLORAMBUCIL [Suspect]
     Active Substance: CHLORAMBUCIL
     Indication: EXTRANODAL MARGINAL ZONE B-CELL LYMPHOMA (MALT TYPE)
     Dosage: FOLLOWED BY 6 MG/M2 PER DAY FOR 14 CONSECUTIVE DAYS PER MONTH FOR 4 CYCLES
     Route: 048
  4. HYDROXYZINE [Concomitant]
     Active Substance: HYDROXYZINE HYDROCHLORIDE
  5. METHYLPREDNISOLONE. [Concomitant]
     Active Substance: METHYLPREDNISOLONE
  6. PARACETAMOL [Concomitant]
     Active Substance: ACETAMINOPHEN

REACTIONS (5)
  - Skin reaction [Unknown]
  - Infection [Recovered/Resolved with Sequelae]
  - Infusion related reaction [Unknown]
  - Breast cancer [Unknown]
  - Neutropenia [Unknown]
